FAERS Safety Report 13881606 (Version 1)
Quarter: 2017Q3

REPORT INFORMATION
  Report Type: Spontaneous
  Country: FR (occurrence: FR)
  Receive Date: 20170818
  Receipt Date: 20170818
  Transmission Date: 20171127
  Serious: Yes (Other)
  Sender: FDA-Public Use
  Company Number: FR-AMGEN-FRASP2017121649

PATIENT
  Age: 81 Year
  Sex: Female

DRUGS (5)
  1. EUPANTOL [Concomitant]
     Active Substance: PANTOPRAZOLE SODIUM
     Dosage: 20 MG (ON DEMAND)
     Route: 048
  2. STRIVERDI RESPIMAT [Concomitant]
     Active Substance: OLODATEROL HYDROCHLORIDE
     Dosage: 2 DF (1 DF, 2 IN 1 DAY(S))
     Route: 055
     Dates: start: 20161203
  3. CACIT VITAMIN D3 [Concomitant]
     Active Substance: CALCIUM CARBONATE\CHOLECALCIFEROL
     Dosage: UNK
     Route: 048
     Dates: start: 201701
  4. UVEDOSE [Concomitant]
     Active Substance: CHOLECALCIFEROL
     Dosage: UNK
     Route: 048
     Dates: start: 201701
  5. PROLIA [Suspect]
     Active Substance: DENOSUMAB
     Indication: OSTEOPOROSIS
     Dosage: 60 MG, Q6MO
     Route: 058
     Dates: start: 20170111, end: 2017

REACTIONS (3)
  - Oedema peripheral [Recovered/Resolved]
  - Arthralgia [Recovered/Resolved]
  - Tooth malformation [Not Recovered/Not Resolved]

NARRATIVE: CASE EVENT DATE: 201705
